FAERS Safety Report 5248298-4 (Version None)
Quarter: 2007Q1

REPORT INFORMATION
  Report Type: 
  Country: None (occurrence: None)
  Receive Date: 20070227
  Receipt Date: 20070205
  Transmission Date: 20070707
  Serious: Yes (Hospitalization)
  Sender: FDA-Public Use
  Company Number: HQWYE838126FEB07

PATIENT
  Sex: Female
  Weight: 80 kg

DRUGS (2)
  1. TYGACIL [Suspect]
     Dosage: 100 MG LOADING DOSE THEN 50 MG EVERY 12 HOURS
     Route: 042
     Dates: start: 20070117, end: 20070124
  2. METOPROLOL SUCCINATE [Concomitant]
     Indication: ATRIAL FIBRILLATION
     Dosage: 2.5 EVERY 6 HOURS
     Route: 042
     Dates: start: 20070117, end: 20070120

REACTIONS (2)
  - BLOOD BILIRUBIN INCREASED [None]
  - HEPATOTOXICITY [None]
